FAERS Safety Report 21378203 (Version 3)
Quarter: 2022Q4

REPORT INFORMATION
  Report Type: Report from Study
  Country: CN (occurrence: CN)
  Receive Date: 20220927
  Receipt Date: 20221004
  Transmission Date: 20230113
  Serious: Yes (Other)
  Sender: FDA-Public Use
  Company Number: CN-SUN PHARMACEUTICAL INDUSTRIES LTD-2022R1-355585

PATIENT
  Sex: Female

DRUGS (1)
  1. AMINOLEVULINIC ACID [Suspect]
     Active Substance: AMINOLEVULINIC ACID
     Indication: Vaginal dysplasia
     Dosage: UNK
     Route: 061

REACTIONS (1)
  - Disease recurrence [Unknown]
